FAERS Safety Report 7419077-4 (Version None)
Quarter: 2011Q2

REPORT INFORMATION
  Report Type: 
  Country: None (occurrence: None)
  Receive Date: 20110415
  Receipt Date: 20110412
  Transmission Date: 20111010
  Serious: Yes (Hospitalization)
  Sender: FDA-Public Use
  Company Number: PHHO2011FR05664

PATIENT
  Sex: Male
  Weight: 90 kg

DRUGS (5)
  1. SANDIMMUNE [Suspect]
     Indication: RENAL TRANSPLANT
     Dosage: 5 MG, DAILY
     Route: 048
     Dates: start: 20101125, end: 20110208
  2. CELLCEPT [Concomitant]
     Dosage: 1.5 G, DAILY
     Route: 048
     Dates: start: 20110216
  3. SOLUPRED [Concomitant]
     Indication: RENAL TRANSPLANT
     Dosage: 7.5 MG, DAILY
     Route: 048
     Dates: start: 20101125
  4. CELLCEPT [Concomitant]
     Indication: RENAL TRANSPLANT
     Dosage: 5 G, DAILY
     Route: 048
     Dates: start: 20101125
  5. PROGRAF [Concomitant]
     Indication: RENAL TRANSPLANT
     Dosage: 3 MG, BID
     Route: 048
     Dates: start: 20110209

REACTIONS (1)
  - CONCOMITANT DISEASE PROGRESSION [None]
